FAERS Safety Report 5933727-0 (Version None)
Quarter: 2008Q4

REPORT INFORMATION
  Report Type: 
  Country: None (occurrence: None)
  Receive Date: 20081029
  Receipt Date: 20081022
  Transmission Date: 20090506
  Serious: Yes (Hospitalization, Disabling, Other)
  Sender: FDA-Public Use
  Company Number: MX-ASTRAZENECA-2008UW23540

PATIENT
  Age: 73 Year
  Sex: Male
  Weight: 80 kg

DRUGS (3)
  1. CASODEX [Suspect]
     Indication: PROSTATE CANCER
     Route: 048
     Dates: start: 20080729
  2. UNSPECIFIED [Concomitant]
     Indication: HYPERTENSION
  3. UNSPECIFIED [Concomitant]
     Indication: DIABETES MELLITUS

REACTIONS (5)
  - CEREBROVASCULAR ACCIDENT [None]
  - FALL [None]
  - HYPERGLYCAEMIA [None]
  - HYPERTENSIVE CRISIS [None]
  - SENSORY LOSS [None]
